FAERS Safety Report 13191832 (Version 1)
Quarter: 2017Q1

REPORT INFORMATION
  Report Type: Report from Study
  Country: US (occurrence: US)
  Receive Date: 20170207
  Receipt Date: 20170207
  Transmission Date: 20170428
  Serious: Yes (Life-Threatening, Other)
  Sender: FDA-Public Use
  Company Number: US-CONCORDIA PHARMACEUTICALS INC.-GSH201702-000750

PATIENT
  Sex: Male

DRUGS (2)
  1. DONNATAL [Suspect]
     Active Substance: ATROPINE SULFATE\HYOSCYAMINE SULFATE\PHENOBARBITAL\SCOPOLAMINE HYDROBROMIDE
     Indication: ABDOMINAL PAIN
     Dosage: 2 CC.DONNATAL AT 6 PM
  2. DRAMAMINE [Suspect]
     Active Substance: DIMENHYDRINATE
     Indication: ABDOMINAL PAIN
     Dosage: 2 CC.DRAMAMINE

REACTIONS (4)
  - Gastrooesophageal reflux disease [Unknown]
  - Apparent life threatening event [Unknown]
  - Hypoxia [Unknown]
  - Obstructive airways disorder [Unknown]
